FAERS Safety Report 7642187-3 (Version None)
Quarter: 2011Q3

REPORT INFORMATION
  Report Type: 
  Country: None (occurrence: None)
  Receive Date: 20110728
  Receipt Date: 20110719
  Transmission Date: 20111222
  Serious: Yes (Life-Threatening, Hospitalization)
  Sender: FDA-Public Use
  Company Number: NL-GENZYME-CLOF-1001710

PATIENT
  Sex: Male
  Weight: 74 kg

DRUGS (15)
  1. IDARUBICIN HCL [Suspect]
     Indication: ACUTE MYELOID LEUKAEMIA
     Dosage: 23 MG, UNK
     Route: 042
     Dates: start: 20110609, end: 20110611
  2. PHENETICILLIN [Concomitant]
     Indication: PROPHYLAXIS
     Dosage: 250 MG, UNK
     Route: 048
     Dates: start: 20110616, end: 20110624
  3. DIGOXIN [Concomitant]
     Indication: ATRIAL FIBRILLATION
     Dosage: 0.25 MG, UNK
     Route: 042
     Dates: start: 20110701, end: 20110704
  4. PAROXETINE HCL [Concomitant]
     Indication: DEPRESSION
     Dosage: 20 MG, UNK
     Route: 048
     Dates: start: 20110610, end: 20110709
  5. IMIPENEM-CILSATATINE [Concomitant]
     Indication: ANTIBIOTIC THERAPY
     Dosage: 500 MG, UNK
     Route: 042
     Dates: start: 20110624, end: 20110704
  6. COLISTIN SULFATE [Concomitant]
     Indication: THERAPEUTIC PROCEDURE
     Dosage: 200 MG, UNK
     Route: 048
     Dates: start: 20110628, end: 20110708
  7. VANCOMYCIN [Concomitant]
     Indication: THERAPEUTIC PROCEDURE
     Dosage: 1000 MG, UNK
     Route: 042
     Dates: start: 20110703, end: 20110704
  8. EVOLTRA [Suspect]
     Indication: ACUTE MYELOID LEUKAEMIA
     Dosage: 18.8 MG, UNK
     Route: 042
     Dates: start: 20110609, end: 20110613
  9. CYTARABINE [Suspect]
     Indication: ACUTE MYELOID LEUKAEMIA
     Dosage: 380 MG, UNK
     Route: 042
     Dates: start: 20110609, end: 20110615
  10. VORICONAZOLE [Concomitant]
     Indication: THERAPEUTIC PROCEDURE
     Dosage: 200 MG, UNK
     Route: 048
     Dates: start: 20110630, end: 20110709
  11. ACETYLCYSTEINE [Concomitant]
     Indication: ANTI-INFECTIVE THERAPY
     Dosage: 2 ML, UNK
     Route: 055
     Dates: start: 20110703, end: 20110704
  12. METOPROLOL TARTRATE [Concomitant]
     Indication: ATRIAL FIBRILLATION
     Dosage: 25 MG, UNK
     Route: 048
     Dates: start: 20110701, end: 20110709
  13. COTRIM [Concomitant]
     Indication: THERAPEUTIC PROCEDURE
     Dosage: 960 MG, UNK
     Route: 048
     Dates: start: 20110706, end: 20110709
  14. AMPHOTERICIN B [Concomitant]
     Indication: ANTI-INFECTIVE THERAPY
     Dosage: 50 MG, UNK
     Route: 042
     Dates: start: 20110707, end: 20110708
  15. CLEMASTINE FUMARATE [Concomitant]
     Indication: THERAPEUTIC PROCEDURE
     Dosage: 2 MG, UNK
     Route: 042
     Dates: start: 20110708, end: 20110708

REACTIONS (1)
  - HAEMOPTYSIS [None]
